FAERS Safety Report 5813841-0 (Version None)
Quarter: 2008Q3

REPORT INFORMATION
  Report Type: 
  Country: None (occurrence: None)
  Receive Date: 20080717
  Receipt Date: 20080709
  Transmission Date: 20090109
  Serious: Yes (Other)
  Sender: FDA-Public Use
  Company Number: PHBS2002TW15011

PATIENT
  Sex: Female
  Weight: 43 kg

DRUGS (4)
  1. GLEEVEC [Suspect]
     Indication: GASTROINTESTINAL STROMAL TUMOUR
     Dosage: 400 MG, QD
     Route: 048
     Dates: start: 20011106
  2. OMEPRAZOLE [Concomitant]
     Indication: OESOPHAGEAL ULCER
     Route: 048
     Dates: start: 20020502, end: 20030105
  3. VITAMIN B COMPLEX CAP [Concomitant]
     Route: 048
     Dates: start: 20020603, end: 20030110
  4. FOLIC ACID [Concomitant]
     Route: 048
     Dates: start: 20020801, end: 20021217

REACTIONS (2)
  - ABORTION INDUCED [None]
  - DRUG EXPOSURE DURING PREGNANCY [None]
